FAERS Safety Report 6774473-3 (Version None)
Quarter: 2010Q2

REPORT INFORMATION
  Report Type: 
  Country: None (occurrence: None)
  Receive Date: 20100617
  Receipt Date: 20100604
  Transmission Date: 20101027
  Serious: Yes (Other)
  Sender: FDA-Public Use
  Company Number: PHHY2010MX36826

PATIENT
  Sex: Female

DRUGS (1)
  1. GENTEAL (NVO) [Suspect]
     Indication: CONJUNCTIVITIS
     Dosage: 1 DROP (3 MG/ML)
     Route: 047
     Dates: start: 20100530

REACTIONS (1)
  - CATARACT [None]
